APPROVED DRUG PRODUCT: LEUCOVORIN CALCIUM
Active Ingredient: LEUCOVORIN CALCIUM
Strength: EQ 500MG BASE/50ML (EQ 10MG BASE/ML)
Dosage Form/Route: SOLUTION;INTRAMUSCULAR, INTRAVENOUS
Application: A207226 | Product #001
Applicant: FRESENIUS KABI USA LLC
Approved: Jul 27, 2018 | RLD: No | RS: Yes | Type: RX